FAERS Safety Report 9144116 (Version 4)
Quarter: 2013Q4

REPORT INFORMATION
  Report Type: Spontaneous
  Country: FR (occurrence: FR)
  Receive Date: 20130306
  Receipt Date: 20131001
  Transmission Date: 20140711
  Serious: Yes (Death)
  Sender: FDA-Public Use
  Company Number: FR-GLAXOSMITHKLINE-B0871065A

PATIENT
  Age: 37 Year
  Sex: Male
  Weight: 53 kg

DRUGS (18)
  1. SERETIDE DISKUS [Suspect]
     Indication: ASTHMA
     Dosage: 500MCG UNKNOWN
     Route: 055
     Dates: end: 201212
  2. AMISULPRIDE [Suspect]
     Indication: DEPRESSION
     Dosage: 800MG PER DAY
     Route: 048
     Dates: start: 20121214, end: 20121228
  3. CELESTAMINE [Suspect]
     Indication: HYPERSENSITIVITY
     Route: 048
     Dates: end: 201212
  4. TERCIAN [Suspect]
     Indication: INSOMNIA
     Route: 048
     Dates: start: 20121128, end: 20121214
  5. TELFAST [Suspect]
     Indication: PRODUCT USED FOR UNKNOWN INDICATION
     Dosage: 180MG PER DAY
     Route: 048
     Dates: end: 201212
  6. LEXOMIL [Suspect]
     Indication: PRODUCT USED FOR UNKNOWN INDICATION
     Dosage: 2TAB PER DAY
     Route: 048
     Dates: end: 201212
  7. LAROXYL [Suspect]
     Indication: PRODUCT USED FOR UNKNOWN INDICATION
     Route: 048
     Dates: start: 20120613, end: 201212
  8. SOLIAN [Concomitant]
     Indication: INSOMNIA
     Route: 048
     Dates: start: 20120910, end: 201212
  9. AIROMIR [Concomitant]
     Indication: PRODUCT USED FOR UNKNOWN INDICATION
     Route: 065
  10. THIOCOLCHICOSIDE [Concomitant]
     Indication: PRODUCT USED FOR UNKNOWN INDICATION
     Dosage: 4MG PER DAY
     Route: 048
  11. MINOXIDIL [Concomitant]
     Indication: PRODUCT USED FOR UNKNOWN INDICATION
     Route: 065
  12. PIRACETAM [Concomitant]
     Indication: PRODUCT USED FOR UNKNOWN INDICATION
     Route: 065
  13. PRAXINOR [Concomitant]
     Indication: PRODUCT USED FOR UNKNOWN INDICATION
     Route: 065
  14. ZOLPIDEM [Concomitant]
     Indication: PRODUCT USED FOR UNKNOWN INDICATION
     Dosage: 10MG VARIABLE DOSE
     Route: 048
  15. NOCTAMIDE [Concomitant]
     Indication: INSOMNIA
     Route: 065
  16. THERALENE [Concomitant]
     Indication: PRODUCT USED FOR UNKNOWN INDICATION
     Dosage: 10DROP PER DAY
     Route: 048
     Dates: start: 20120613
  17. ALPRAZOLAM [Concomitant]
     Indication: PRODUCT USED FOR UNKNOWN INDICATION
     Dosage: .25MG TWICE PER DAY
     Route: 048
     Dates: start: 20120717
  18. LOXAPAC [Concomitant]
     Indication: SEDATION
     Dosage: 25MG TWICE PER DAY
     Route: 048
     Dates: start: 20120823, end: 20120910

REACTIONS (2)
  - Myocardial infarction [Fatal]
  - Acute pulmonary oedema [Fatal]
